FAERS Safety Report 7535327-8 (Version None)
Quarter: 2011Q2

REPORT INFORMATION
  Report Type: 
  Country: None (occurrence: None)
  Receive Date: 20110609
  Receipt Date: 20080403
  Transmission Date: 20111010
  Serious: Yes (Death, Other)
  Sender: FDA-Public Use
  Company Number: PHMT2007CA01652

PATIENT
  Sex: Female

DRUGS (3)
  1. CLOZAPINE [Suspect]
     Indication: SCHIZOPHRENIA
     Dates: start: 19981006
  2. CLOZAPINE [Suspect]
     Dosage: 32.5 MG DAILY
     Route: 048
     Dates: start: 20010601
  3. ANTINEOPLASTIC AGENTS [Suspect]

REACTIONS (5)
  - NEUTROPHIL COUNT DECREASED [None]
  - BREAST CANCER [None]
  - NEOPLASM MALIGNANT [None]
  - WHITE BLOOD CELL COUNT DECREASED [None]
  - AGRANULOCYTOSIS [None]
